FAERS Safety Report 7548756-3 (Version None)
Quarter: 2011Q2

REPORT INFORMATION
  Report Type: 
  Country: None (occurrence: None)
  Receive Date: 20110615
  Receipt Date: 20110531
  Transmission Date: 20111010
  Serious: Yes (Death)
  Sender: FDA-Public Use
  Company Number: AU-ELI_LILLY_AND_COMPANY-AU201104001326

PATIENT
  Age: 25 Year
  Sex: Male

DRUGS (8)
  1. VALPROATE SODIUM [Concomitant]
     Dosage: UNK, UNKNOWN
     Route: 065
  2. METFORMIN HCL [Concomitant]
     Dosage: 500 MG, UNKNOWN
     Route: 048
  3. TESTOSTERONE [Concomitant]
     Dosage: UNK, UNKNOWN
     Route: 065
  4. QUETIAPINE [Concomitant]
     Dosage: 200 MG, UNKNOWN
     Route: 065
  5. QUETIAPINE [Concomitant]
     Dosage: 600 MG, UNKNOWN
     Route: 065
  6. ZYPREXA RELPREVV [Suspect]
     Dosage: 210 MG, UNK
     Route: 030
     Dates: start: 20110124, end: 20110321
  7. OLANZAPINE [Suspect]
     Dosage: 20 MG, UNKNOWN
     Route: 065
     Dates: start: 20110216, end: 20110329
  8. ASPIRIN [Concomitant]
     Dosage: UNK, UNKNOWN
     Route: 065

REACTIONS (1)
  - OVERDOSE [None]
